FAERS Safety Report 5241257-7 (Version None)
Quarter: 2007Q1

REPORT INFORMATION
  Report Type: 
  Country: None (occurrence: None)
  Receive Date: 20070212
  Receipt Date: 20070212
  Transmission Date: 20070707
  Serious: Yes (Other)
  Sender: FDA-Public Use
  Company Number: None

PATIENT
  Age: 61 Year
  Sex: Male
  Weight: 63.5036 kg

DRUGS (1)
  1. NEOMYCIN [Suspect]
     Indication: PNEUMONIA
     Dosage: 500MG 3 TIMES A DAY PO
     Route: 048
     Dates: start: 20070120, end: 20070207

REACTIONS (1)
  - DEAFNESS [None]
